FAERS Safety Report 8267481-7 (Version None)
Quarter: 2012Q2

REPORT INFORMATION
  Report Type: 
  Country: None (occurrence: None)
  Receive Date: 20120409
  Receipt Date: 20120404
  Transmission Date: 20120825
  Serious: Yes (Death)
  Sender: FDA-Public Use
  Company Number: PHHY2012MX029228

PATIENT
  Age: 88 Year
  Sex: Male

DRUGS (2)
  1. EXELON [Suspect]
     Indication: DEMENTIA ALZHEIMER'S TYPE
     Dosage: 9.5 MG/10 CM2 ( 1 PATCH DAILY)
     Route: 062
     Dates: start: 20120201
  2. MEMANTINE HYDROCHLORIDE [Concomitant]
     Dosage: 1 DF, QD
     Route: 048

REACTIONS (4)
  - RESPIRATORY ARREST [None]
  - DECREASED APPETITE [None]
  - EATING DISORDER [None]
  - SOMNOLENCE [None]
